FAERS Safety Report 9315521 (Version 1)
Quarter: 2013Q2

REPORT INFORMATION
  Report Type: Spontaneous
  Country: US (occurrence: US)
  Receive Date: 20130529
  Receipt Date: 20130529
  Transmission Date: 20140414
  Serious: No
  Sender: FDA-Public Use
  Company Number: US-009507513-1305USA011444

PATIENT
  Age: 2 Year
  Sex: Female
  Weight: 12.7 kg

DRUGS (2)
  1. CLARITIN ORAL SOLUTION [Suspect]
     Indication: HYPERSENSITIVITY
     Dosage: UNK UNK, ONCE
     Dates: start: 20130503
  2. CLARITIN ORAL SOLUTION [Suspect]
     Dosage: UNK UNK, ONCE
     Dates: start: 20130503

REACTIONS (1)
  - Overdose [Unknown]
